FAERS Safety Report 22122495 (Version 1)
Quarter: 2023Q1

REPORT INFORMATION
  Report Type: Spontaneous
  Country: SE (occurrence: SE)
  Receive Date: 20230321
  Receipt Date: 20230321
  Transmission Date: 20230417
  Serious: Yes (Death, Hospitalization)
  Sender: FDA-Public Use
  Company Number: None

PATIENT
  Age: 60 Year
  Sex: Male
  Weight: 124 kg

DRUGS (5)
  1. KEYTRUDA [Suspect]
     Active Substance: PEMBROLIZUMAB
     Indication: Urethral cancer metastatic
     Dosage: 25 MG/ML 400MG/6 WEEKS
     Route: 042
     Dates: start: 20221209
  2. LAKTULOS MEDA [Concomitant]
     Dosage: 670 MG/ML 10-20 ML VB
     Route: 048
     Dates: start: 20220412
  3. POLYETHYLENE GLYCOL 3350\POTASSIUM CHLORIDE\SODIUM BICARBONATE\SODIUM [Concomitant]
     Active Substance: POLYETHYLENE GLYCOL 3350\POTASSIUM CHLORIDE\SODIUM BICARBONATE\SODIUM CHLORIDE
     Dosage: IF NECESSARY
     Route: 048
     Dates: start: 20220415
  4. OXAZEPAM [Concomitant]
     Active Substance: OXAZEPAM
     Dosage: 10 MG 1VB
     Route: 048
     Dates: start: 20221017
  5. TRIUMEQ [Concomitant]
     Active Substance: ABACAVIR SULFATE\DOLUTEGRAVIR SODIUM\LAMIVUDINE
     Dosage: 50 MG/600 MG/300 MG 1X1
     Dates: start: 20180216

REACTIONS (3)
  - Sepsis [Fatal]
  - Multiple organ dysfunction syndrome [Fatal]
  - Colitis [Fatal]

NARRATIVE: CASE EVENT DATE: 20230101
